FAERS Safety Report 6956866-4 (Version None)
Quarter: 2010Q3

REPORT INFORMATION
  Report Type: 
  Country: None (occurrence: None)
  Receive Date: 20100830
  Receipt Date: 20100824
  Transmission Date: 20110219
  Serious: Yes (Death, Hospitalization)
  Sender: FDA-Public Use
  Company Number: FR-MERCK-1008FRA00080

PATIENT
  Age: 58 Year
  Sex: Male

DRUGS (15)
  1. CANCIDAS [Suspect]
     Route: 042
     Dates: start: 20100419, end: 20100513
  2. VANCOMYCIN [Suspect]
     Route: 042
     Dates: start: 20100418, end: 20100512
  3. ESOMEPRAZOLE MAGNESIUM [Suspect]
     Route: 042
     Dates: start: 20100419
  4. ACETAMINOPHEN [Suspect]
     Route: 042
     Dates: start: 20100427, end: 20100506
  5. ACETAMINOPHEN [Suspect]
     Route: 042
     Dates: start: 20100401, end: 20100419
  6. CEFTRIAXONE SODIUM [Suspect]
     Route: 065
     Dates: start: 20100426, end: 20100504
  7. PIPERACILLIN AND TAZOBACTAM [Suspect]
     Route: 065
     Dates: start: 20100419, end: 20100424
  8. FLUCONAZOLE [Concomitant]
     Route: 065
     Dates: start: 20100401, end: 20100419
  9. METHYLPREDNISOLONE SODIUM SUCCINATE [Suspect]
     Route: 065
     Dates: start: 20100420, end: 20100425
  10. IMMUNE GLOBULIN NOS [Suspect]
     Route: 065
     Dates: start: 20100420, end: 20100424
  11. METOCLOPRAMIDE HYDROCHLORIDE [Concomitant]
     Route: 065
     Dates: start: 20100401, end: 20100419
  12. COLCHICINE [Concomitant]
     Route: 065
     Dates: start: 20100401, end: 20100410
  13. VALACYCLOVIR HYDROCHLORIDE [Concomitant]
     Route: 065
     Dates: start: 20100409, end: 20100419
  14. OFLOXACIN [Concomitant]
     Indication: HAEMOPHILUS INFECTION
     Route: 065
     Dates: start: 20100414, end: 20100419
  15. ACYCLOVIR [Suspect]
     Route: 065
     Dates: start: 20100419, end: 20100425

REACTIONS (1)
  - STEVENS-JOHNSON SYNDROME [None]
